FAERS Safety Report 4995321-8 (Version None)
Quarter: 2006Q2

REPORT INFORMATION
  Report Type: 
  Country: None (occurrence: None)
  Receive Date: 20060508
  Receipt Date: 20060425
  Transmission Date: 20061013
  Serious: Yes (Hospitalization)
  Sender: FDA-Public Use
  Company Number: US-MERCK-0604USA04033

PATIENT
  Age: 69 Year
  Sex: Female
  Weight: 68 kg

DRUGS (10)
  1. VIOXX [Suspect]
     Indication: ARTHRITIS
     Route: 048
     Dates: start: 20000101, end: 20030101
  2. TOPROL-XL [Concomitant]
     Route: 065
  3. ALTACE [Concomitant]
     Route: 065
  4. PAXIL [Concomitant]
     Route: 065
  5. AVANDIA [Concomitant]
     Route: 065
  6. PLAVIX [Concomitant]
     Route: 065
  7. ZOCOR [Concomitant]
     Route: 048
  8. ASPIRIN [Concomitant]
     Route: 065
  9. ATIVAN [Concomitant]
     Route: 065
  10. ULTRAM [Concomitant]
     Route: 065

REACTIONS (2)
  - ANXIETY [None]
  - CEREBROVASCULAR ACCIDENT [None]
